FAERS Safety Report 8841393 (Version 1)
Quarter: 2012Q4

REPORT INFORMATION
  Report Type: 
  Country: US (occurrence: US)
  Receive Date: 20121015
  Receipt Date: 20121015
  Transmission Date: 20130627
  Serious: Yes (Hospitalization)
  Sender: FDA-Public Use
  Company Number: US-ASTELLAS-2012US009976

PATIENT
  Sex: Male

DRUGS (1)
  1. PROGRAF [Suspect]
     Indication: RENAL TRANSPLANT
     Dosage: 2 mg, UID/QD
     Route: 048

REACTIONS (5)
  - Amputation [Unknown]
  - Deep vein thrombosis [Unknown]
  - Renal failure chronic [Unknown]
  - Diabetes mellitus [Unknown]
  - Atrial fibrillation [Unknown]
